FAERS Safety Report 19060021 (Version 1)
Quarter: 2021Q1

REPORT INFORMATION
  Report Type: Spontaneous
  Country: NL (occurrence: NL)
  Receive Date: 20210326
  Receipt Date: 20210326
  Transmission Date: 20210420
  Serious: Yes (Other)
  Sender: FDA-Public Use
  Company Number: NL-SA-2021SA099362

PATIENT
  Age: 72 Year
  Sex: Female

DRUGS (2)
  1. LEFLUNOMIDE. [Suspect]
     Active Substance: LEFLUNOMIDE
     Indication: RHEUMATOID ARTHRITIS
     Dosage: 20 MG, QD (1X/D )
     Route: 048
     Dates: start: 20200706, end: 20210201
  2. ADALIMUMAB [Concomitant]
     Active Substance: ADALIMUMAB
     Dosage: 40 MG, QOW (1X / 2W)
     Route: 058
     Dates: start: 20200226

REACTIONS (1)
  - Rheumatoid arthritis [Recovering/Resolving]

NARRATIVE: CASE EVENT DATE: 20201201
